FAERS Safety Report 9782984 (Version 2)
Quarter: 2014Q2

REPORT INFORMATION
  Report Type: Spontaneous
  Country: AU (occurrence: AU)
  Receive Date: 20131226
  Receipt Date: 20140604
  Transmission Date: 20141212
  Serious: Yes (Hospitalization)
  Sender: FDA-Public Use
  Company Number: AU-PFIZER INC-2013366865

PATIENT
  Age: 48 Year
  Sex: Female

DRUGS (4)
  1. MIRTAZAPINE [Suspect]
     Indication: MAJOR DEPRESSION
     Dosage: 15 MG, DAILY
  2. MIRTAZAPINE [Interacting]
     Indication: SUICIDAL IDEATION
     Dosage: 30 MG, DAILY
  3. VENLAFAXINE HCL [Interacting]
     Indication: MAJOR DEPRESSION
     Dosage: UNK
  4. VENLAFAXINE HCL [Interacting]
     Indication: SUICIDAL IDEATION

REACTIONS (4)
  - Drug interaction [Recovered/Resolved]
  - Oedema peripheral [Recovered/Resolved]
  - Oedema [Recovered/Resolved]
  - Tenderness [Recovered/Resolved]
